FAERS Safety Report 4381051-2 (Version None)
Quarter: 2004Q2

REPORT INFORMATION
  Report Type: 
  Country: None (occurrence: None)
  Receive Date: 20040621
  Receipt Date: 20040610
  Transmission Date: 20050107
  Serious: Yes (Hospitalization)
  Sender: FDA-Public Use
  Company Number: PHNU2004DE02091

PATIENT
  Age: 66 Year
  Sex: Male

DRUGS (2)
  1. TRILEPTAL [Suspect]
     Indication: EPILEPSY
     Dosage: 2100 MG/D
     Route: 048
  2. KEPPRA [Suspect]

REACTIONS (2)
  - DEPRESSED MOOD [None]
  - SUICIDE ATTEMPT [None]
